FAERS Safety Report 24015609 (Version 1)
Quarter: 2024Q2

REPORT INFORMATION
  Report Type: Spontaneous
  Country: US (occurrence: US)
  Receive Date: 20240626
  Receipt Date: 20240626
  Transmission Date: 20240715
  Serious: Yes (Hospitalization, Other)
  Sender: FDA-Public Use
  Company Number: US-ALEMBIC PHARMACUETICALS LIMITED-2024SCAL000880

PATIENT

DRUGS (1)
  1. LAMOTRIGINE [Suspect]
     Active Substance: LAMOTRIGINE
     Indication: Bipolar disorder
     Dosage: 100 MILLIGRAM, QD
     Route: 065

REACTIONS (22)
  - Human herpesvirus 6 infection reactivation [Unknown]
  - Sunburn [Unknown]
  - Mental status changes [Unknown]
  - Lung consolidation [Unknown]
  - Pneumonia aspiration [Unknown]
  - Acute respiratory distress syndrome [Recovering/Resolving]
  - Critical illness [Unknown]
  - CSF glucose increased [Unknown]
  - CSF white blood cell count increased [Unknown]
  - Intracranial pressure increased [Unknown]
  - Encephalitis [Unknown]
  - Brain oedema [Unknown]
  - Status epilepticus [Unknown]
  - Seizure [Unknown]
  - Drug reaction with eosinophilia and systemic symptoms [Unknown]
  - Rash [Unknown]
  - Rash pruritic [Unknown]
  - Swelling [Unknown]
  - Leukocytosis [Unknown]
  - Tachycardia [Unknown]
  - Skin lesion inflammation [Unknown]
  - Skin oedema [Unknown]
